FAERS Safety Report 8916509 (Version 2)
Quarter: 2013Q1

REPORT INFORMATION
  Report Type: Spontaneous
  Country: US (occurrence: US)
  Receive Date: 20121120
  Receipt Date: 20130225
  Transmission Date: 20140127
  Serious: No
  Sender: FDA-Public Use
  Company Number: US-ASTRAZENECA-2012SE85080

PATIENT
  Age: 82 Year
  Sex: Female
  Weight: 71.7 kg

DRUGS (8)
  1. FASLODEX [Suspect]
     Indication: BREAST CANCER
     Route: 030
     Dates: start: 20121024
  2. LESTROZOLE [Concomitant]
     Indication: HORMONE THERAPY
  3. ZETIA [Concomitant]
     Indication: BLOOD CHOLESTEROL ABNORMAL
     Route: 048
  4. FUROSEMIDE [Concomitant]
     Indication: DIURETIC THERAPY
     Route: 048
  5. POTASSIUM CHLORIDE [Concomitant]
     Route: 058
  6. TRAZADONE HCL [Concomitant]
     Indication: SLEEP DISORDER
     Route: 048
  7. SERTRALINE [Concomitant]
     Indication: AFFECTIVE DISORDER
     Route: 048
  8. HYDROCODONE/ACETAMINOPHEN [Concomitant]
     Indication: PAIN
     Dosage: 5-500 MG AS NEEDED
     Route: 048

REACTIONS (5)
  - Back pain [Unknown]
  - Arthralgia [Unknown]
  - Alopecia [Unknown]
  - Fatigue [Unknown]
  - Injection site pain [Unknown]
